FAERS Safety Report 18088012 (Version 1)
Quarter: 2020Q3

REPORT INFORMATION
  Report Type: Spontaneous
  Country: US (occurrence: US)
  Receive Date: 20200729
  Receipt Date: 20200729
  Transmission Date: 20201103
  Serious: Yes (Hospitalization, Other)
  Sender: FDA-Public Use
  Company Number: US-AMGEN-USASP2020118211

PATIENT
  Age: 66 Year
  Sex: Male

DRUGS (4)
  1. NEULASTA [Suspect]
     Active Substance: PEGFILGRASTIM
     Indication: CYTOPENIA
     Dosage: UNK
     Route: 065
     Dates: start: 2020
  2. ONIVYDE [IRINOTECAN MONOHYDROCHLORIDE TRIHYDRATE] [Concomitant]
     Indication: ADENOCARCINOMA PANCREAS
     Dosage: 50 MILLIGRAM/SQ. METER
     Route: 065
     Dates: start: 20200122
  3. 5?FU [FLUOROURACIL] [Concomitant]
     Active Substance: FLUOROURACIL
     Indication: ADENOCARCINOMA PANCREAS
     Dosage: UNK
     Dates: start: 20200122
  4. OXALIPLATIN. [Concomitant]
     Active Substance: OXALIPLATIN
     Indication: ADENOCARCINOMA PANCREAS
     Dosage: 60 MILLIGRAM/SQ. METER
     Route: 065
     Dates: start: 20200122

REACTIONS (2)
  - Hypertension [Recovered/Resolved]
  - Pulmonary embolism [Recovered/Resolved]

NARRATIVE: CASE EVENT DATE: 20200609
